FAERS Safety Report 12168491 (Version 1)
Quarter: 2016Q1

REPORT INFORMATION
  Report Type: Spontaneous
  Country: BR (occurrence: BR)
  Receive Date: 20160310
  Receipt Date: 20160310
  Transmission Date: 20160526
  Serious: Yes (Other)
  Sender: FDA-Public Use
  Company Number: BR-ASTRAZENECA-2016SE22899

PATIENT
  Age: 23490 Day
  Sex: Male
  Weight: 107 kg

DRUGS (5)
  1. COMPOUNDED (ATENOLOL 50MG+HYDROCHLOROTHIAZIDE 20MG + LOSARTAN 60MG) [Concomitant]
     Indication: BLOOD PRESSURE ABNORMAL
     Dosage: ATENOLOL 50MG+HYDROCHLOROTHIAZIDE 20MG + LOSARTAN 60MG, DAILY
     Route: 048
     Dates: start: 2014
  2. GLUCOVANCE [Concomitant]
     Active Substance: GLYBURIDE\METFORMIN HYDROCHLORIDE
     Indication: DIABETES MELLITUS
     Dosage: DAILY
     Route: 048
     Dates: start: 20160229, end: 20160229
  3. FORXIGA [Suspect]
     Active Substance: DAPAGLIFLOZIN
     Indication: DIABETES MELLITUS
     Route: 048
     Dates: start: 20160229, end: 20160229
  4. GLUCOVANCE [Concomitant]
     Active Substance: GLYBURIDE\METFORMIN HYDROCHLORIDE
     Indication: DIABETES MELLITUS
     Dosage: TWO TIMES DAILY
     Dates: start: 20160229
  5. GALVUS [Concomitant]
     Active Substance: VILDAGLIPTIN
     Indication: DIABETES MELLITUS
     Dosage: TWO TIMES A DAY
     Route: 048
     Dates: start: 2013

REACTIONS (1)
  - Dizziness [Recovered/Resolved]

NARRATIVE: CASE EVENT DATE: 20160229
